FAERS Safety Report 9534758 (Version 2)
Quarter: 2013Q3

REPORT INFORMATION
  Report Type: Spontaneous
  Country: US (occurrence: US)
  Receive Date: 20130918
  Receipt Date: 20130918
  Transmission Date: 20140515
  Serious: Yes (Other)
  Sender: FDA-Public Use
  Company Number: US-NAPPMUNDI-USA-2011-0076713

PATIENT
  Age: 60 Year
  Sex: Female
  Weight: 61.22 kg

DRUGS (8)
  1. BUTRANS [Suspect]
     Indication: PAIN
     Dosage: 5 MCG, Q1H
     Route: 062
     Dates: start: 201107, end: 201108
  2. BUTRANS [Suspect]
     Dosage: 10 MCG, Q1H
     Route: 062
     Dates: start: 201108, end: 201109
  3. BUTRANS [Suspect]
     Dosage: 20 MCG, Q1H
     Route: 062
     Dates: start: 201109, end: 201111
  4. TOPAMAX [Concomitant]
  5. FLEXERIL                           /00428402/ [Concomitant]
  6. PAXIL [Concomitant]
  7. IMITREX                            /01044801/ [Concomitant]
  8. ESTROGEN [Concomitant]

REACTIONS (6)
  - Application site discharge [Recovered/Resolved]
  - Application site discolouration [Not Recovered/Not Resolved]
  - Application site rash [Recovered/Resolved]
  - Application site erythema [Not Recovered/Not Resolved]
  - Drug hypersensitivity [Not Recovered/Not Resolved]
  - Pruritus generalised [Recovered/Resolved]
